FAERS Safety Report 4750320-6 (Version None)
Quarter: 2005Q3

REPORT INFORMATION
  Report Type: 
  Country: None (occurrence: None)
  Receive Date: 20050823
  Receipt Date: 20050812
  Transmission Date: 20060218
  Serious: Yes (Hospitalization)
  Sender: FDA-Public Use
  Company Number: CH-JNJFOC-20050803345

PATIENT
  Age: 85 Year
  Sex: Female

DRUGS (9)
  1. RISPERDAL [Suspect]
     Indication: DRUG USE FOR UNKNOWN INDICATION
     Route: 048
  2. TORSEMIDE [Concomitant]
     Route: 048
  3. DIGOXIN [Concomitant]
     Route: 048
  4. ENATEC [Concomitant]
     Route: 048
  5. ROCALTROL [Concomitant]
     Route: 048
  6. DETROL [Concomitant]
     Route: 048
  7. NEO-MERCAZOLE TAB [Concomitant]
     Route: 048
  8. DAFALGAN [Concomitant]
     Route: 048
  9. IMOVANE [Concomitant]
     Route: 048

REACTIONS (11)
  - ANOREXIA [None]
  - BONE PAIN [None]
  - CONFUSIONAL STATE [None]
  - DISORIENTATION [None]
  - EXTRAPYRAMIDAL DISORDER [None]
  - FALL [None]
  - FATIGUE [None]
  - MENTAL DISORDER [None]
  - MYALGIA [None]
  - PSYCHOMOTOR HYPERACTIVITY [None]
  - URINARY TRACT INFECTION [None]
